FAERS Safety Report 17141239 (Version 1)
Quarter: 2019Q4

REPORT INFORMATION
  Report Type: Spontaneous
  Country: CN (occurrence: CN)
  Receive Date: 20191211
  Receipt Date: 20191211
  Transmission Date: 20200122
  Serious: Yes (Hospitalization)
  Sender: FDA-Public Use
  Company Number: CN-PFIZER INC-2019531277

PATIENT
  Age: 54 Year
  Sex: Female

DRUGS (6)
  1. METOPROLOL TARTRATE. [Suspect]
     Active Substance: METOPROLOL TARTRATE
     Indication: THERAPEUTIC PROCEDURE
     Dosage: 12.5 MG, 2X/DAY
     Route: 048
     Dates: start: 20191116, end: 20191126
  2. OMEPRAZOLE SODIUM [Suspect]
     Active Substance: OMEPRAZOLE SODIUM
     Indication: THERAPEUTIC PROCEDURE
     Dosage: 40 MG, 1X/DAY
     Route: 041
     Dates: start: 20191121, end: 20191123
  3. BENAZEPRIL HYDROCHLORIDE. [Suspect]
     Active Substance: BENAZEPRIL HYDROCHLORIDE
     Indication: THERAPEUTIC PROCEDURE
     Dosage: 5 MG, 1X/DAY
     Route: 048
     Dates: start: 20191116, end: 20191126
  4. LIPITOR [Suspect]
     Active Substance: ATORVASTATIN CALCIUM
     Indication: THERAPEUTIC PROCEDURE
     Dosage: 20 MG, 1X/DAY
     Route: 048
     Dates: start: 20191116, end: 20191122
  5. CLOPIDOGREL BISULFATE. [Suspect]
     Active Substance: CLOPIDOGREL BISULFATE
     Indication: THERAPEUTIC PROCEDURE
     Dosage: 75 MG, 1X/DAY
     Route: 048
     Dates: start: 20191116, end: 20191126
  6. BAYASPIRIN [Suspect]
     Active Substance: ASPIRIN
     Indication: THERAPEUTIC PROCEDURE
     Dosage: 100 MG, 1X/DAY
     Route: 048
     Dates: start: 20191117, end: 20191126

REACTIONS (1)
  - Hepatic enzyme increased [Unknown]

NARRATIVE: CASE EVENT DATE: 20191122
